FAERS Safety Report 8154273-2 (Version None)
Quarter: 2012Q1

REPORT INFORMATION
  Report Type: 
  Country: None (occurrence: None)
  Receive Date: 20120221
  Receipt Date: 20120214
  Transmission Date: 20120608
  Serious: Yes (Hospitalization)
  Sender: FDA-Public Use
  Company Number: US-VERTEX PHARMACEUTICALS INC.-AE-2012-001737

PATIENT
  Sex: Male

DRUGS (6)
  1. PEGASYS [Concomitant]
     Dates: start: 20120131
  2. RIBAVIRIN [Concomitant]
     Dates: start: 20120131
  3. INCIVEK [Suspect]
     Dates: start: 20120130
  4. INCIVEK [Suspect]
     Indication: HEPATITIS C
     Route: 048
  5. PEGASYS [Concomitant]
     Indication: HEPATITIS C
     Route: 058
  6. RIBAVIRIN [Concomitant]
     Indication: HEPATITIS C
     Route: 048

REACTIONS (13)
  - STAPHYLOCOCCAL BACTERAEMIA [None]
  - OLIGURIA [None]
  - EROSIVE OESOPHAGITIS [None]
  - DIARRHOEA [None]
  - COUGH [None]
  - MENTAL STATUS CHANGES [None]
  - HYPOTENSION [None]
  - TACHYCARDIA [None]
  - PYREXIA [None]
  - GINGIVAL BLEEDING [None]
  - GASTRITIS EROSIVE [None]
  - MELAENA [None]
  - INTERNATIONAL NORMALISED RATIO INCREASED [None]
